FAERS Safety Report 9523883 (Version 5)
Quarter: 2015Q1

REPORT INFORMATION
  Report Type: Spontaneous
  Country: US (occurrence: US)
  Receive Date: 20130911
  Receipt Date: 20150120
  Transmission Date: 20150721
  Serious: Yes (Hospitalization, Disabling, Other)
  Sender: FDA-Public Use
  Company Number: US-009507513-1309USA003661

PATIENT
  Sex: Female
  Weight: 64.36 kg

DRUGS (6)
  1. FOSAMAX [Suspect]
     Active Substance: ALENDRONATE SODIUM
     Dosage: 70 MG, UNK
     Route: 048
     Dates: start: 20050620, end: 20051212
  2. ALENDRONATE SODIUM. [Suspect]
     Active Substance: ALENDRONATE SODIUM
     Indication: OSTEOPOROSIS
     Dosage: 10 MG, UNK
     Route: 048
     Dates: start: 20080609, end: 20110201
  3. CALCIUM (UNSPECIFIED) [Concomitant]
     Active Substance: CALCIUM
     Dosage: 500-1000 MG
     Dates: start: 1995
  4. FOSAMAX [Suspect]
     Active Substance: ALENDRONATE SODIUM
     Indication: OSTEOPOROSIS
     Dosage: 10 MG, QD
     Route: 048
     Dates: start: 1996, end: 20050705
  5. FOSAMAX [Suspect]
     Active Substance: ALENDRONATE SODIUM
     Dosage: 10 MG, QD
     Route: 048
     Dates: start: 20051212, end: 20090105
  6. ALENDRONATE SODIUM. [Suspect]
     Active Substance: ALENDRONATE SODIUM
     Dosage: 70 MG, QW
     Route: 048
     Dates: start: 20110222, end: 201109

REACTIONS (56)
  - Adenocarcinoma of colon [Unknown]
  - Chronic obstructive pulmonary disease [Not Recovered/Not Resolved]
  - Pneumothorax [Unknown]
  - Urinary tract infection [Unknown]
  - Pleural fibrosis [Unknown]
  - Oedema peripheral [Unknown]
  - Musculoskeletal pain [Recovering/Resolving]
  - Colectomy [Unknown]
  - Wrist fracture [Unknown]
  - Acquired diaphragmatic eventration [Unknown]
  - Hypothyroidism [Unknown]
  - Iron deficiency anaemia [Unknown]
  - Post procedural haematoma [Unknown]
  - Hypokalaemia [Unknown]
  - Back pain [Recovering/Resolving]
  - Lung adenocarcinoma stage I [Unknown]
  - Respiratory distress [Recovering/Resolving]
  - Anaemia [Recovered/Resolved]
  - Fatigue [Unknown]
  - Hyponatraemia [Recovered/Resolved]
  - Thrombocytopenia [Unknown]
  - Hypertonic bladder [Unknown]
  - Gastritis [Unknown]
  - Intramedullary rod insertion [Unknown]
  - Medical device removal [Recovering/Resolving]
  - Fracture nonunion [Unknown]
  - Hypokalaemia [Unknown]
  - Osteoarthritis [Unknown]
  - Spondylitis [Unknown]
  - Spinal osteoarthritis [Unknown]
  - Tendon rupture [Unknown]
  - Pulmonary vascular disorder [Unknown]
  - Pleural effusion [Unknown]
  - Abdominal operation [Unknown]
  - Lung lobectomy [Unknown]
  - Osteopenia [Unknown]
  - Pleural effusion [Unknown]
  - Vitamin D deficiency [Recovered/Resolved]
  - Asthenia [Recovering/Resolving]
  - Femur fracture [Recovering/Resolving]
  - Upper limb fracture [Unknown]
  - Lung consolidation [Unknown]
  - Laceration [Unknown]
  - Anaemia postoperative [Unknown]
  - Bone density decreased [Unknown]
  - Device failure [Unknown]
  - Breast tenderness [Unknown]
  - Metrorrhagia [Unknown]
  - Anaemia postoperative [Unknown]
  - Atrial fibrillation [Unknown]
  - Inappropriate antidiuretic hormone secretion [Unknown]
  - Rheumatoid arthritis [Unknown]
  - Hypovolaemia [Unknown]
  - Open reduction of fracture [Unknown]
  - Gastrointestinal haemorrhage [Unknown]
  - Gastrooesophageal reflux disease [Unknown]

NARRATIVE: CASE EVENT DATE: 19970711
